FAERS Safety Report 25325386 (Version 1)
Quarter: 2025Q2

REPORT INFORMATION
  Report Type: Other
  Country: DE (occurrence: DE)
  Receive Date: 20250516
  Receipt Date: 20250516
  Transmission Date: 20250716
  Serious: Yes (Congenital Anomaly, Other)
  Sender: LUPIN
  Company Number: DE-EMB-M202101371-1

PATIENT
  Sex: Male
  Weight: 3.04 kg

DRUGS (3)
  1. ZIPRASIDONE [Suspect]
     Active Substance: ZIPRASIDONE
     Indication: Schizophrenia
     Dosage: 40 MILLIGRAM, QD
     Dates: start: 202012, end: 202109
  2. BOOSTRIX [Concomitant]
     Active Substance: TETANUS TOXOID, REDUCED DIPHTHERIA TOXOID AND ACELLULAR PERTUSSIS VACCINE, ADSORBED ANTIGENS
     Indication: Immunisation
     Dates: start: 202107, end: 202107
  3. BUTYLSCOPOLAMINE BROMIDE [Concomitant]
     Active Substance: BUTYLSCOPOLAMINE BROMIDE
     Indication: Labour pain

REACTIONS (2)
  - Pulmonary artery stenosis congenital [Recovering/Resolving]
  - Foetal exposure during pregnancy [Unknown]
